FAERS Safety Report 22529462 (Version 1)
Quarter: 2023Q2

REPORT INFORMATION
  Report Type: Other
  Country: KR (occurrence: KR)
  Receive Date: 20230607
  Receipt Date: 20230607
  Transmission Date: 20230721
  Serious: Yes (Death, Other)
  Sender: FDA-Public Use
  Company Number: KR-BoehringerIngelheim-2023-BI-241417

PATIENT
  Age: 59 Year
  Sex: Female

DRUGS (1)
  1. ALTEPLASE [Suspect]
     Active Substance: ALTEPLASE
     Indication: Cerebral infarction
     Route: 042

REACTIONS (4)
  - Subarachnoid haemorrhage [Fatal]
  - Vertebrobasilar artery dissection [Unknown]
  - Intracranial aneurysm [Unknown]
  - Vertebral artery thrombosis [Unknown]
